FAERS Safety Report 22219636 (Version 1)
Quarter: 2023Q2

REPORT INFORMATION
  Report Type: Spontaneous
  Country: CA (occurrence: CA)
  Receive Date: 20230417
  Receipt Date: 20230417
  Transmission Date: 20230721
  Serious: Yes (Death, Hospitalization)
  Sender: FDA-Public Use
  Company Number: CA-FreseniusKabi-FK202304831

PATIENT
  Age: 71 Year
  Sex: Male
  Weight: 77 kg

DRUGS (3)
  1. ETOPOSIDE [Suspect]
     Active Substance: ETOPOSIDE
     Indication: Chemotherapy
     Dosage: NOT SPECIFIED?190 MG
     Route: 041
  2. CARBOPLATIN [Suspect]
     Active Substance: CARBOPLATIN
     Indication: Chemotherapy
     Dosage: SOLUTION INTRAVENOUS?480 MG
     Route: 042
  3. FORMOTEROL\MOMETASONE [Concomitant]
     Active Substance: FORMOTEROL\MOMETASONE
     Indication: Product used for unknown indication
     Dosage: AEROSOL, METEREDDOSE

REACTIONS (2)
  - Atypical pneumonia [Fatal]
  - Febrile neutropenia [Fatal]
